FAERS Safety Report 14169394 (Version 1)
Quarter: 2017Q4

REPORT INFORMATION
  Report Type: Spontaneous
  Country: US (occurrence: US)
  Receive Date: 20171107
  Receipt Date: 20171107
  Transmission Date: 20180321
  Serious: Yes (Other)
  Sender: FDA-Public Use
  Company Number: None

PATIENT
  Age: 88 Year
  Sex: Male
  Weight: 81 kg

DRUGS (1)
  1. METOPROLOL TARTRATE. [Suspect]
     Active Substance: METOPROLOL TARTRATE
     Indication: HYPERTENSION
     Route: 048
     Dates: start: 20110328, end: 20120428

REACTIONS (4)
  - Confusional state [None]
  - Memory impairment [None]
  - Delusional disorder, unspecified type [None]
  - Paranoia [None]

NARRATIVE: CASE EVENT DATE: 20120428
